FAERS Safety Report 10211598 (Version 1)
Quarter: 2014Q2

REPORT INFORMATION
  Report Type: Spontaneous
  Country: FR (occurrence: FR)
  Receive Date: 20140602
  Receipt Date: 20140602
  Transmission Date: 20141212
  Serious: Yes (Other)
  Sender: FDA-Public Use
  Company Number: FR-TEVA-485021ISR

PATIENT
  Age: 59 Year
  Sex: Male

DRUGS (7)
  1. CEFTRIAXONE [Suspect]
     Indication: BRAIN ABSCESS
     Dosage: 2G/DAY
     Route: 042
  2. FOSFOMYCIN [Concomitant]
     Indication: ANTIBIOTIC THERAPY
     Dosage: 4G/DAY
     Route: 042
  3. CEFOTAXIME [Concomitant]
     Indication: ANTIBIOTIC THERAPY
     Dosage: 4G/DAY
     Route: 042
  4. METRONIDAZOLE [Concomitant]
     Indication: ANTIBIOTIC THERAPY
     Dosage: 1500MG/DAY
     Route: 042
  5. LISINOPRIL [Concomitant]
     Indication: HYPERTENSION
     Dosage: 20MG/DAY
     Route: 065
  6. ENOXAPARIN SODIUM [Concomitant]
     Dosage: 40MG/DAY
     Route: 058
  7. PANTOPRAZOLE [Concomitant]
     Dosage: 40MG/DAY; BY MOUTH
     Route: 050

REACTIONS (1)
  - Hoigne^s syndrome [Recovered/Resolved]
